FAERS Safety Report 5509461-8 (Version None)
Quarter: 2007Q4

REPORT INFORMATION
  Report Type: 
  Country: None (occurrence: None)
  Receive Date: 20071107
  Receipt Date: 20071026
  Transmission Date: 20080405
  Serious: Yes (Other)
  Sender: FDA-Public Use
  Company Number: BR-PFIZER INC-2007058395

PATIENT
  Sex: Male
  Weight: 73.5 kg

DRUGS (9)
  1. CAVERJECT [Suspect]
     Indication: ERECTILE DYSFUNCTION
     Route: 051
  2. CAVERJECT [Suspect]
  3. VIAGRA [Suspect]
     Indication: ERECTILE DYSFUNCTION
     Route: 048
  4. VIAGRA [Suspect]
  5. CIALIS [Suspect]
     Indication: ERECTILE DYSFUNCTION
     Route: 048
  6. SIMVASTATIN [Concomitant]
     Indication: BLOOD CHOLESTEROL INCREASED
  7. ATENOLOL [Concomitant]
     Indication: HYPERTENSION
     Dosage: DAILY DOSE:20MG
  8. GLUCOSAMINE [Concomitant]
     Indication: ARTHRALGIA
  9. CHONDROITIN [Concomitant]
     Indication: ARTHRALGIA

REACTIONS (13)
  - ABDOMINAL PAIN UPPER [None]
  - DRUG INEFFECTIVE [None]
  - ERECTILE DYSFUNCTION [None]
  - ERECTION INCREASED [None]
  - ERYTHEMA [None]
  - EYE PAIN [None]
  - FLATULENCE [None]
  - HEADACHE [None]
  - PENILE PAIN [None]
  - TACHYCARDIA [None]
  - TINNITUS [None]
  - URINARY TRACT DISORDER [None]
  - VISUAL DISTURBANCE [None]
